FAERS Safety Report 7306454-5 (Version None)
Quarter: 2011Q1

REPORT INFORMATION
  Report Type: 
  Country: None (occurrence: None)
  Receive Date: 20110222
  Receipt Date: 20110214
  Transmission Date: 20110831
  Serious: Yes (Hospitalization)
  Sender: FDA-Public Use
  Company Number: US-B.I. PHARMACEUTICALS,INC./RIDGEFIELD-2010-BP-15183BP

PATIENT
  Sex: Female

DRUGS (9)
  1. HYDRALAZINE [Concomitant]
     Indication: HYPERTENSION
  2. LORAZEPAM [Concomitant]
     Indication: ANXIETY
  3. CARVEDILOL [Concomitant]
     Indication: HYPERTENSION
  4. PRADAXA [Suspect]
     Indication: ATRIAL FIBRILLATION
     Dosage: 300 MG
     Route: 048
     Dates: start: 20101216
  5. TRAZODONE HCL [Concomitant]
     Indication: ANXIETY
  6. LOVASTATIN [Concomitant]
     Indication: BLOOD CHOLESTEROL INCREASED
  7. OMEPRAZOLE [Concomitant]
     Indication: GASTROOESOPHAGEAL REFLUX DISEASE
  8. NORVASC [Concomitant]
     Indication: HYPERTENSION
  9. MULTAQ [Concomitant]
     Indication: ATRIAL FIBRILLATION

REACTIONS (3)
  - DYSPEPSIA [None]
  - HAEMORRHAGE [None]
  - ERUCTATION [None]
